FAERS Safety Report 15623566 (Version 2)
Quarter: 2018Q4

REPORT INFORMATION
  Report Type: Spontaneous
  Country: KR (occurrence: KR)
  Receive Date: 20181115
  Receipt Date: 20181116
  Transmission Date: 20190205
  Serious: Yes (Hospitalization, Other)
  Sender: FDA-Public Use
  Company Number: KR-BAYER-2018-206545

PATIENT
  Age: 46 Year
  Sex: Male

DRUGS (4)
  1. SORAFENIB (RAF KINASE INHIBITOR) [Suspect]
     Active Substance: SORAFENIB
     Indication: METASTASES TO LUNG
     Dosage: 400 MG DAY
     Dates: start: 20180704, end: 20181111
  2. SORAFENIB (RAF KINASE INHIBITOR) [Suspect]
     Active Substance: SORAFENIB
     Indication: HEPATOCELLULAR CARCINOMA
     Dosage: 400 MG, BID
     Dates: start: 20151116, end: 201604
  3. ENTECAVIR. [Concomitant]
     Active Substance: ENTECAVIR
     Dosage: 0.5 MG DAILY
  4. IOMERON [Concomitant]
     Active Substance: IOMEPROL

REACTIONS (6)
  - Palmar-plantar erythrodysaesthesia syndrome [None]
  - Metastases to lung [Recovering/Resolving]
  - Anaphylactic shock [Recovered/Resolved]
  - Blood pressure decreased [None]
  - Loss of consciousness [None]
  - Dyspnoea [None]

NARRATIVE: CASE EVENT DATE: 20151231
